FAERS Safety Report 5941442-2 (Version None)
Quarter: 2008Q4

REPORT INFORMATION
  Report Type: 
  Country: None (occurrence: None)
  Receive Date: 20081031
  Receipt Date: 20081023
  Transmission Date: 20090506
  Serious: Yes (Life-Threatening)
  Sender: FDA-Public Use
  Company Number: IDA-00143

PATIENT
  Age: 44 Year
  Sex: Female

DRUGS (2)
  1. INDERAL [Suspect]
     Dosage: 2 MG INTRAVENOUS FORMULATION: INJECTION
     Route: 042
     Dates: start: 20080317, end: 20080317
  2. RINGERS INJECTION IN PLASTIC CONTAINER [Concomitant]

REACTIONS (3)
  - CARDIAC ARREST [None]
  - VENTRICULAR FIBRILLATION [None]
  - VENTRICULAR TACHYCARDIA [None]
